FAERS Safety Report 11094925 (Version 1)
Quarter: 2015Q2

REPORT INFORMATION
  Report Type: Spontaneous
  Country: US (occurrence: US)
  Receive Date: 20150506
  Receipt Date: 20150506
  Transmission Date: 20150821
  Serious: Yes (Life-Threatening, Hospitalization)
  Sender: FDA-Public Use
  Company Number: US-SIGMA-TAU US-2015STPI000281

PATIENT
  Age: 5 Year
  Sex: Male
  Weight: 19.3 kg

DRUGS (1)
  1. ONCASPAR [Suspect]
     Active Substance: PEGASPARGASE
     Indication: ACUTE LYMPHOCYTIC LEUKAEMIA
     Dosage: 2500 IU/M2, X1
     Route: 042
     Dates: start: 20150324, end: 20150324

REACTIONS (4)
  - Cerebral ischaemia [Recovering/Resolving]
  - Intracardiac thrombus [Recovering/Resolving]
  - Pyrexia [Recovering/Resolving]
  - Pulmonary thrombosis [Recovering/Resolving]

NARRATIVE: CASE EVENT DATE: 20150409
